FAERS Safety Report 4443584-X (Version None)
Quarter: 2004Q3

REPORT INFORMATION
  Report Type: 
  Country: None (occurrence: None)
  Receive Date: 20040903
  Receipt Date: 20040903
  Transmission Date: 20050211
  Serious: Yes (Life-Threatening)
  Sender: FDA-Public Use
  Company Number: None

PATIENT
  Sex: Female
  Weight: 25.9 kg

DRUGS (6)
  1. PEG LASPARAGINASE [Suspect]
     Indication: ACUTE LYMPHOCYTIC LEUKAEMIA
     Dosage: 2500 U/M2 IM
     Route: 030
     Dates: start: 20040701
  2. PEG LASPARAGINASE [Suspect]
     Indication: B PRECURSOR TYPE ACUTE LEUKAEMIA
     Dosage: 2500 U/M2 IM
     Route: 030
     Dates: start: 20040701
  3. DEXAMETHASONE [Suspect]
     Dosage: 6 MG/ M2 1 BID PO
     Route: 048
     Dates: start: 20040701, end: 20040801
  4. BACTRIM [Concomitant]
  5. DIFLUCAN [Concomitant]
  6. DECADRON [Concomitant]

REACTIONS (3)
  - ASTHENIA [None]
  - DYSPHAGIA [None]
  - HEMIPARESIS [None]
